FAERS Safety Report 4549244-9 (Version None)
Quarter: 2005Q1

REPORT INFORMATION
  Report Type: 
  Country: None (occurrence: None)
  Receive Date: 20050110
  Receipt Date: 20050110
  Transmission Date: 20050727
  Serious: No
  Sender: FDA-Public Use
  Company Number: None

PATIENT
  Age: 74 Year
  Sex: Female
  Weight: 84.369 kg

DRUGS (3)
  1. ZANTAC 150 [Suspect]
     Indication: GASTROOESOPHAGEAL REFLUX DISEASE
  2. LISINOPRIL [Suspect]
  3. GLUCOTROL [Suspect]

REACTIONS (4)
  - ABDOMINAL DISCOMFORT [None]
  - NAUSEA [None]
  - URTICARIA [None]
  - VOMITING [None]
